FAERS Safety Report 18119118 (Version 3)
Quarter: 2020Q4

REPORT INFORMATION
  Report Type: Report from Study
  Country: US (occurrence: US)
  Receive Date: 20200806
  Receipt Date: 20201111
  Transmission Date: 20210113
  Serious: Yes (Death, Hospitalization, Other)
  Sender: FDA-Public Use
  Company Number: US-SHIRE-US202025437

PATIENT
  Age: 76 Year
  Sex: Male

DRUGS (12)
  1. GATTEX [Suspect]
     Active Substance: TEDUGLUTIDE\WATER
     Indication: SHORT-BOWEL SYNDROME
     Dosage: 4.4 MILLIGRAM, 1X/DAY:QD
     Route: 058
     Dates: start: 20200707
  2. GATTEX [Suspect]
     Active Substance: TEDUGLUTIDE\WATER
     Dosage: UNK
     Route: 065
     Dates: start: 20200727
  3. GATTEX [Suspect]
     Active Substance: TEDUGLUTIDE\WATER
     Dosage: UNK
     Route: 065
     Dates: start: 20200727
  4. GATTEX [Suspect]
     Active Substance: TEDUGLUTIDE\WATER
     Dosage: 4.4 MILLIGRAM, 1X/DAY:QD
     Route: 058
     Dates: start: 202005
  5. GATTEX [Suspect]
     Active Substance: TEDUGLUTIDE\WATER
     Indication: SHORT-BOWEL SYNDROME
     Dosage: 4.4 MILLIGRAM, 1X/DAY:QD
     Route: 058
     Dates: start: 20200707
  6. GATTEX [Suspect]
     Active Substance: TEDUGLUTIDE\WATER
     Dosage: 4.4 MILLIGRAM, 1X/DAY:QD
     Route: 058
     Dates: start: 202005
  7. GATTEX [Suspect]
     Active Substance: TEDUGLUTIDE\WATER
     Indication: SHORT-BOWEL SYNDROME
     Dosage: 4.4 MILLIGRAM, 1X/DAY:QD
     Route: 058
     Dates: start: 20200707
  8. GATTEX [Suspect]
     Active Substance: TEDUGLUTIDE\WATER
     Dosage: UNK
     Route: 065
     Dates: start: 20200727
  9. GATTEX [Suspect]
     Active Substance: TEDUGLUTIDE\WATER
     Dosage: 4.4 MILLIGRAM, 1X/DAY:QD
     Route: 058
     Dates: start: 202005
  10. GATTEX [Suspect]
     Active Substance: TEDUGLUTIDE\WATER
     Dosage: 4.4 MILLIGRAM, 1X/DAY:QD
     Route: 058
     Dates: start: 202005
  11. GATTEX [Suspect]
     Active Substance: TEDUGLUTIDE\WATER
     Indication: SHORT-BOWEL SYNDROME
     Dosage: 4.4 MILLIGRAM, 1X/DAY:QD
     Route: 058
     Dates: start: 20200707
  12. GATTEX [Suspect]
     Active Substance: TEDUGLUTIDE\WATER
     Dosage: UNK
     Route: 065
     Dates: start: 20200727

REACTIONS (6)
  - Abscess [Unknown]
  - Abdominal pain [Recovered/Resolved]
  - Death [Fatal]
  - Swelling [Unknown]
  - Abdominal distension [Unknown]
  - Pancreatitis [Unknown]

NARRATIVE: CASE EVENT DATE: 202008
